FAERS Safety Report 4972574-3 (Version None)
Quarter: 2006Q1

REPORT INFORMATION
  Report Type: 
  Country: None (occurrence: None)
  Receive Date: 20060216
  Receipt Date: 20051025
  Transmission Date: 20060701
  Serious: No
  Sender: FDA-Public Use
  Company Number: TPA2005A01342

PATIENT
  Age: 56 Year
  Sex: Female
  Weight: 57.6068 kg

DRUGS (6)
  1. ROZEREM [Suspect]
     Indication: INSOMNIA
     Dosage: SEE IMAGE
     Route: 048
     Dates: start: 20051022
  2. ROZEREM [Suspect]
     Indication: SOMNOLENCE
     Dosage: SEE IMAGE
     Route: 048
     Dates: start: 20051022
  3. TRAZODONE (TRAZODONE) (15 MILLIGRAM) [Suspect]
     Indication: HORMONE REPLACEMENT THERAPY
     Dosage: 15 MG, 1 IN 1 D, PER ORAL
     Route: 048
     Dates: start: 20050901, end: 20051024
  4. TRAZODONE (TRAZODONE) (15 MILLIGRAM) [Suspect]
     Indication: SOMNOLENCE
     Dosage: 15 MG, 1 IN 1 D, PER ORAL
     Route: 048
     Dates: start: 20050901, end: 20051024
  5. LUNESTA [Concomitant]
  6. PROGESTERONE CREAM (PROGESTERONE) [Concomitant]

REACTIONS (1)
  - HEADACHE [None]
